FAERS Safety Report 7047643-7 (Version None)
Quarter: 2010Q4

REPORT INFORMATION
  Report Type: 
  Country: None (occurrence: None)
  Receive Date: 20101014
  Receipt Date: 20101014
  Transmission Date: 20110411
  Serious: Yes (Other)
  Sender: FDA-Public Use
  Company Number: None

PATIENT
  Sex: Male
  Weight: 57.6068 kg

DRUGS (2)
  1. TAMSULOSIN HCL [Suspect]
     Indication: URINARY RETENTION
     Dosage: 0.4 MG DAILY ORAL
     Route: 048
     Dates: start: 20060101
  2. FLOMAX [Suspect]

REACTIONS (3)
  - IRRITABILITY [None]
  - PRODUCT SUBSTITUTION ISSUE [None]
  - TREMOR [None]
